FAERS Safety Report 6534745-4 (Version None)
Quarter: 2010Q1

REPORT INFORMATION
  Report Type: 
  Country: None (occurrence: None)
  Receive Date: 20100112
  Receipt Date: 20100107
  Transmission Date: 20100710
  Serious: Yes (Other)
  Sender: FDA-Public Use
  Company Number: US-WYE-H12917710

PATIENT
  Sex: Male

DRUGS (1)
  1. ROBITUSSIN COUGH LONG ACTING [Suspect]
     Dosage: UNKNOWN
     Route: 048

REACTIONS (1)
  - DRUG DEPENDENCE [None]
